FAERS Safety Report 14079979 (Version 2)
Quarter: 2017Q4

REPORT INFORMATION
  Report Type: Report from Study
  Country: IE (occurrence: IE)
  Receive Date: 20171012
  Receipt Date: 20171020
  Transmission Date: 20180321
  Serious: Yes (Death, Hospitalization)
  Sender: FDA-Public Use
  Company Number: IE-TAKEDA-2017MPI008873

PATIENT
  Age: 83 Year
  Sex: Male

DRUGS (18)
  1. REVLIMID [Concomitant]
     Active Substance: LENALIDOMIDE
     Dosage: 5 MG, UNK
     Route: 050
  2. CO-AMOXICLAVE [Concomitant]
     Active Substance: AMOXICILLIN\CLAVULANATE POTASSIUM
     Dosage: UNK, TID
     Route: 050
     Dates: end: 20170714
  3. VALSARTAN. [Concomitant]
     Active Substance: VALSARTAN
     Dosage: 40 MG, QD
     Route: 050
  4. PINAMOX [Concomitant]
     Dosage: 500 MG, TID
     Route: 050
  5. ZIRPINE [Concomitant]
     Dosage: 10 MG, UNK
     Route: 050
  6. VELCADE [Suspect]
     Active Substance: BORTEZOMIB
     Indication: PLASMA CELL MYELOMA
     Dosage: 2.5 MG, UNK
     Route: 058
     Dates: start: 20161229
  7. BISOPROLOL [Concomitant]
     Active Substance: BISOPROLOL
     Dosage: 1.25 MG, QD
     Route: 050
  8. ONE ALPHA [Concomitant]
     Active Substance: ALFACALCIDOL
     Dosage: UNK, TID
     Route: 050
     Dates: end: 20170714
  9. FUCIDIN [Concomitant]
     Active Substance: FUSIDIC ACID
     Dosage: 20 MG, QD
     Route: 050
  10. SEVELAMER [Concomitant]
     Active Substance: SEVELAMER
     Dosage: 800 MG, TID
     Route: 050
  11. PANTOPRAZOLE [Concomitant]
     Active Substance: PANTOPRAZOLE
     Dosage: 40 MG, QD
     Route: 050
  12. VALACICLOVIR [Concomitant]
     Active Substance: VALACYCLOVIR HYDROCHLORIDE
     Dosage: 500 MG, BID
     Route: 050
  13. INNOHEP [Concomitant]
     Active Substance: TINZAPARIN SODIUM
     Dosage: 4500 IU, QD
     Route: 050
  14. CALCIUM ACETATE. [Concomitant]
     Active Substance: CALCIUM ACETATE
     Dosage: 1000 MG, TID
     Route: 050
  15. FOLIC ACID. [Concomitant]
     Active Substance: FOLIC ACID
     Dosage: 5 MG, 1/WEEK
     Route: 050
  16. CETIRIZINE                         /00884302/ [Concomitant]
     Active Substance: CETIRIZINE HYDROCHLORIDE
     Dosage: 10 MG, UNK
     Route: 050
     Dates: end: 20170714
  17. CITALOPRAM [Concomitant]
     Active Substance: CITALOPRAM HYDROBROMIDE
     Dosage: 10 MG, QD
     Route: 050
  18. DEXAMETHASONE. [Concomitant]
     Active Substance: DEXAMETHASONE
     Dosage: 20 MG, UNK
     Route: 050

REACTIONS (4)
  - Hospitalisation [Unknown]
  - Malaise [Unknown]
  - Drug dose omission [Unknown]
  - Death [Fatal]
